FAERS Safety Report 9330593 (Version 2)
Quarter: 2013Q3

REPORT INFORMATION
  Report Type: Spontaneous
  Country: FR (occurrence: FR)
  Receive Date: 20130605
  Receipt Date: 20130731
  Transmission Date: 20140515
  Serious: Yes (Hospitalization)
  Sender: FDA-Public Use
  Company Number: PHHY2013FR056148

PATIENT
  Age: 11 Year
  Sex: Female
  Weight: 35 kg

DRUGS (3)
  1. VOTUBIA [Suspect]
     Indication: ASTROCYTOMA, LOW GRADE
     Dosage: 5 MG, QD
     Route: 048
     Dates: start: 201203
  2. SABRIL [Concomitant]
  3. URBANYL [Concomitant]

REACTIONS (1)
  - Lymphoedema [Not Recovered/Not Resolved]
